FAERS Safety Report 11049151 (Version 5)
Quarter: 2015Q2

REPORT INFORMATION
  Report Type: Spontaneous
  Country: US (occurrence: US)
  Receive Date: 20150420
  Receipt Date: 20150603
  Transmission Date: 20150821
  Serious: Yes (Other)
  Sender: FDA-Public Use
  Company Number: US-ENDO PHARMACEUTICALS INC.-2015-000487

PATIENT
  Age: 12 Year
  Sex: Female

DRUGS (2)
  1. SUPPRELIN LA [Suspect]
     Active Substance: HISTRELIN ACETATE
     Indication: PRODUCT USE ISSUE
  2. SUPPRELIN LA [Suspect]
     Active Substance: HISTRELIN ACETATE
     Indication: GENDER IDENTITY DISORDER
     Route: 065
     Dates: start: 201412

REACTIONS (13)
  - Implant site rash [Unknown]
  - Product use issue [Not Recovered/Not Resolved]
  - Implant site scar [Not Recovered/Not Resolved]
  - Implant site pain [Recovered/Resolved]
  - Implant site erythema [Recovering/Resolving]
  - Injection site scab [Unknown]
  - Implant site discharge [Recovered/Resolved]
  - Implant site pruritus [Unknown]
  - Device expulsion [Recovered/Resolved]
  - Suicide attempt [Unknown]
  - Implant site swelling [Unknown]
  - Depression [Unknown]
  - Implant site irritation [Unknown]

NARRATIVE: CASE EVENT DATE: 201412
